FAERS Safety Report 7380342-0 (Version None)
Quarter: 2011Q1

REPORT INFORMATION
  Report Type: 
  Country: None (occurrence: None)
  Receive Date: 20110318
  Receipt Date: 20110303
  Transmission Date: 20110831
  Serious: Yes (Other)
  Sender: FDA-Public Use
  Company Number: AUR-APL-2011-00494

PATIENT
  Age: 26 Year
  Sex: Male
  Weight: 50.794 kg

DRUGS (2)
  1. FLUOXETINE [Suspect]
     Indication: OBSESSIVE-COMPULSIVE DISORDER
     Dosage: 20MG-DAILY
     Dates: start: 20080601, end: 20090201
  2. FLUOXETINE [Suspect]
     Indication: OBSESSIVE-COMPULSIVE DISORDER
     Dosage: 60MG-DAILY-ORAL
     Route: 048
     Dates: start: 20090201, end: 20091104

REACTIONS (4)
  - MICTURITION URGENCY [None]
  - POLLAKIURIA [None]
  - IRITIS [None]
  - ALOPECIA [None]
